FAERS Safety Report 7884178-3 (Version None)
Quarter: 2011Q4

REPORT INFORMATION
  Report Type: 
  Country: None (occurrence: None)
  Receive Date: 20111102
  Receipt Date: 20111026
  Transmission Date: 20120403
  Serious: Yes (Life-Threatening, Hospitalization)
  Sender: FDA-Public Use
  Company Number: FR-GLAXOSMITHKLINE-B0758175A

PATIENT
  Sex: Female

DRUGS (7)
  1. ASPIRIN [Concomitant]
  2. IRBESARTAN AND HYDROCHLOROTHIAZIDE [Concomitant]
  3. LEVOTHYROXINE SODIUM [Concomitant]
  4. ARIXTRA [Suspect]
     Indication: THROMBOPHLEBITIS
     Dosage: 7.5MG PER DAY
     Route: 058
     Dates: start: 20110729, end: 20110819
  5. LAMALINE [Concomitant]
     Dosage: 1UNIT THREE TIMES PER DAY
  6. BISOPROLOL FUMARATE [Concomitant]
  7. PRAVIGARD PAC (COPACKAGED) [Concomitant]
     Dates: end: 20110820

REACTIONS (4)
  - GASTROINTESTINAL HAEMORRHAGE [None]
  - INCORRECT DRUG ADMINISTRATION DURATION [None]
  - MELAENA [None]
  - INTRA-ABDOMINAL HAEMATOMA [None]
